FAERS Safety Report 6903192-5 (Version None)
Quarter: 2010Q3

REPORT INFORMATION
  Report Type: 
  Country: None (occurrence: None)
  Receive Date: 20100803
  Receipt Date: 20080826
  Transmission Date: 20110219
  Serious: Yes (Other)
  Sender: FDA-Public Use
  Company Number: US-PFIZER INC-2008071428

PATIENT
  Sex: Male
  Weight: 97.5 kg

DRUGS (2)
  1. LYRICA [Suspect]
     Indication: BURNING SENSATION
     Dosage: EVERYDAY
     Dates: start: 20080813, end: 20080822
  2. LORAZEPAM [Concomitant]

REACTIONS (4)
  - FACIAL PAIN [None]
  - HYPOAESTHESIA [None]
  - SPEECH DISORDER [None]
  - TRISMUS [None]
